FAERS Safety Report 7328573-X (Version None)
Quarter: 2011Q1

REPORT INFORMATION
  Report Type: 
  Country: None (occurrence: None)
  Receive Date: 20110303
  Receipt Date: 20100224
  Transmission Date: 20110831
  Serious: Yes (Death, Other)
  Sender: FDA-Public Use
  Company Number: US-BAYER-2011-018421

PATIENT
  Sex: Female

DRUGS (6)
  1. TRASYLOL [Suspect]
     Dosage: 400 ML THEN 50ML/HR
     Dates: start: 20060809, end: 20060809
  2. PROTAMINE SULFATE [Concomitant]
     Dosage: 200 UNK, UNK
     Route: 042
  3. VERSED [Concomitant]
     Dosage: UNK
     Dates: start: 20060809
  4. ETOMIDATE [Concomitant]
     Dosage: 10 UNK, UNK
  5. HEPARIN [Concomitant]
     Dosage: 20 ML, UNK
     Route: 042
     Dates: start: 20060809
  6. ANCEF [Concomitant]
     Dosage: 1 G, UNK
     Dates: start: 20060809

REACTIONS (5)
  - RENAL FAILURE [None]
  - INJURY [None]
  - DEATH [None]
  - EMOTIONAL DISTRESS [None]
  - PAIN [None]
